FAERS Safety Report 7433236-6 (Version None)
Quarter: 2011Q2

REPORT INFORMATION
  Report Type: 
  Country: None (occurrence: None)
  Receive Date: 20110422
  Receipt Date: 20110418
  Transmission Date: 20111010
  Serious: Yes (Death, Hospitalization)
  Sender: FDA-Public Use
  Company Number: US-CELGENEUS-163-20785-11010862

PATIENT
  Sex: Male

DRUGS (3)
  1. THALOMID [Suspect]
     Indication: MYELOFIBROSIS
     Dosage: 50 MILLIGRAM
     Route: 048
     Dates: start: 20100929, end: 20101126
  2. PREDNISONE [Concomitant]
     Indication: MYELOFIBROSIS
     Dosage: 40 MILLIGRAM
     Route: 065
     Dates: start: 20100929, end: 20101126
  3. OXYGEN [Concomitant]
     Route: 055

REACTIONS (1)
  - INTERSTITIAL LUNG DISEASE [None]
